FAERS Safety Report 14832275 (Version 4)
Quarter: 2018Q2

REPORT INFORMATION
  Report Type: Report from Study
  Country: US (occurrence: US)
  Receive Date: 20180501
  Receipt Date: 20180621
  Transmission Date: 20180711
  Serious: Yes (Hospitalization, Other)
  Sender: FDA-Public Use
  Company Number: US-BAYER-2018-061490

PATIENT
  Age: 64 Year
  Sex: Male

DRUGS (2)
  1. STIVARGA [Suspect]
     Active Substance: REGORAFENIB
     Indication: COLON CANCER
     Dosage: DAILY DOSE 80 MG
     Route: 048
     Dates: start: 20180409, end: 20180611
  2. STIVARGA [Suspect]
     Active Substance: REGORAFENIB
     Indication: COLORECTAL CANCER METASTATIC
     Dosage: DAILY DOSE 160 MG
     Route: 048
     Dates: start: 20180323, end: 20180328

REACTIONS (31)
  - Pyrexia [Recovered/Resolved]
  - Impaired self-care [Not Recovered/Not Resolved]
  - Myalgia [Recovering/Resolving]
  - White blood cell count decreased [Not Recovered/Not Resolved]
  - Blood pressure increased [Recovering/Resolving]
  - Hypertension [Recovered/Resolved]
  - Dizziness [None]
  - Ear discomfort [None]
  - Headache [Recovered/Resolved]
  - Dysphonia [None]
  - Onycholysis [Not Recovered/Not Resolved]
  - Pain in extremity [Not Recovered/Not Resolved]
  - Red blood cell count decreased [None]
  - Back pain [None]
  - Myalgia [Not Recovered/Not Resolved]
  - Skin disorder [None]
  - Pain [Not Recovered/Not Resolved]
  - Hypertension [Not Recovered/Not Resolved]
  - Fatigue [Not Recovered/Not Resolved]
  - Bone pain [Not Recovered/Not Resolved]
  - Platelet count decreased [Not Recovered/Not Resolved]
  - Abdominal pain upper [Recovered/Resolved]
  - Dyspnoea exertional [None]
  - Constipation [None]
  - Headache [Not Recovered/Not Resolved]
  - Ear pain [None]
  - Renal pain [None]
  - Inflammation [None]
  - Depression [None]
  - Skin fissures [Not Recovered/Not Resolved]
  - Dysacusis [Not Recovered/Not Resolved]

NARRATIVE: CASE EVENT DATE: 2018
